FAERS Safety Report 6568914-4 (Version None)
Quarter: 2010Q1

REPORT INFORMATION
  Report Type: 
  Country: None (occurrence: None)
  Receive Date: 20100203
  Receipt Date: 20100122
  Transmission Date: 20100710
  Serious: Yes (Other)
  Sender: FDA-Public Use
  Company Number: ES-SANOFI-AVENTIS-2010SA004384

PATIENT
  Sex: Male

DRUGS (1)
  1. LEUPRORELIN ACETATE [Suspect]
     Indication: PROSTATE CANCER
     Route: 058
     Dates: start: 20091001, end: 20091001

REACTIONS (2)
  - BLOOD TESTOSTERONE INCREASED [None]
  - MEDICATION ERROR [None]
